FAERS Safety Report 19876858 (Version 4)
Quarter: 2022Q1

REPORT INFORMATION
  Report Type: Spontaneous
  Country: US (occurrence: US)
  Receive Date: 20210923
  Receipt Date: 20220106
  Transmission Date: 20220424
  Serious: Yes (Other)
  Sender: FDA-Public Use
  Company Number: US-CELGENE-USA-20210904089

PATIENT
  Age: 69 Year
  Sex: Male

DRUGS (32)
  1. REVLIMID [Suspect]
     Active Substance: LENALIDOMIDE
     Indication: Plasma cell myeloma
     Dosage: 20 MILLIGRAM
     Route: 048
     Dates: start: 20210604
  2. ACYCLOVIR [Concomitant]
     Active Substance: ACYCLOVIR
     Indication: Product used for unknown indication
     Dosage: 2 TABLET
     Route: 048
     Dates: start: 202109
  3. AMLODIPINE BESYLATE [Concomitant]
     Active Substance: AMLODIPINE BESYLATE
     Indication: Product used for unknown indication
     Dosage: 1 TABLET
     Route: 048
     Dates: start: 202108
  4. AMOXICILLIN [Concomitant]
     Active Substance: AMOXICILLIN
     Indication: Product used for unknown indication
     Dosage: 3 TABLET
     Route: 048
     Dates: start: 202010
  5. AMOXICILLIN [Concomitant]
     Active Substance: AMOXICILLIN
     Dosage: 3 TABLET
     Route: 048
     Dates: start: 202010
  6. AMOXICILLIN [Concomitant]
     Active Substance: AMOXICILLIN
     Dosage: 2 TABLET
     Route: 048
     Dates: start: 202002
  7. BUPROPION [Concomitant]
     Active Substance: BUPROPION
     Indication: Product used for unknown indication
     Dosage: 2 TABLET
     Route: 048
     Dates: start: 202002
  8. BUPROPION [Concomitant]
     Active Substance: BUPROPION
     Dosage: 2 TABLET
     Route: 048
     Dates: start: 202003
  9. BUPROPION [Concomitant]
     Active Substance: BUPROPION
     Dosage: 2 TABLET
     Route: 048
     Dates: start: 202107
  10. CLINDAMYCIN [Concomitant]
     Active Substance: CLINDAMYCIN
     Indication: Product used for unknown indication
     Dosage: 4 TABLET
     Route: 048
     Dates: start: 202002
  11. DESVENLAFAXINE SUCCINATE [Concomitant]
     Active Substance: DESVENLAFAXINE SUCCINATE
     Indication: Product used for unknown indication
     Dosage: 1 TABLET
     Route: 048
     Dates: start: 202107
  12. DESVENLAFAXINE SUCCINATE [Concomitant]
     Active Substance: DESVENLAFAXINE SUCCINATE
     Dosage: 1 TABLET
     Route: 048
     Dates: start: 202004
  13. Fluzone(65)HDPF [Concomitant]
     Indication: Product used for unknown indication
     Route: 030
     Dates: start: 202009
  14. ACETAMINOPHEN\HYDROCODONE [Concomitant]
     Active Substance: ACETAMINOPHEN\HYDROCODONE
     Indication: Product used for unknown indication
     Dosage: 7.5-325 T?1/2 TO 1 TABLET BY MOUTH EVERY 4 HOURS
     Route: 048
     Dates: start: 202010
  15. LEVOTHYROXINE [Concomitant]
     Active Substance: LEVOTHYROXINE
     Indication: Product used for unknown indication
     Dosage: 1 TABLET
     Route: 048
     Dates: start: 202107
  16. LISINOPRIL [Concomitant]
     Active Substance: LISINOPRIL
     Indication: Product used for unknown indication
     Dosage: 1 TABLET
     Route: 048
     Dates: start: 202010
  17. HYDROCHLOROTHIAZIDE\LISINOPRIL [Concomitant]
     Active Substance: HYDROCHLOROTHIAZIDE\LISINOPRIL
     Indication: Product used for unknown indication
     Dosage: 20/25 MG
     Route: 048
     Dates: start: 202008
  18. HYDROCHLOROTHIAZIDE\LISINOPRIL [Concomitant]
     Active Substance: HYDROCHLOROTHIAZIDE\LISINOPRIL
     Dosage: 20/25 MG
     Route: 048
     Dates: start: 202108
  19. METOPROLOL SUCCINATE [Concomitant]
     Active Substance: METOPROLOL SUCCINATE
     Indication: Product used for unknown indication
     Dosage: 2 TABLET
     Route: 048
     Dates: start: 202109
  20. METOPROLOL SUCCINATE [Concomitant]
     Active Substance: METOPROLOL SUCCINATE
     Dosage: 2 TABLET
     Route: 048
     Dates: start: 202101
  21. IBUPROFEN [Concomitant]
     Active Substance: IBUPROFEN
     Indication: Product used for unknown indication
     Route: 048
  22. MELATONIN [Concomitant]
     Active Substance: MELATONIN
     Indication: Product used for unknown indication
     Route: 048
  23. TYLENOL [Concomitant]
     Active Substance: ACETAMINOPHEN
     Indication: Product used for unknown indication
     Route: 048
  24. VELCADE [Concomitant]
     Active Substance: BORTEZOMIB
     Indication: Product used for unknown indication
     Dosage: 3.5 MG INJ, 1 VIAL
     Route: 065
  25. VITAMIN B12 [Concomitant]
     Active Substance: CYANOCOBALAMIN
     Indication: Product used for unknown indication
     Route: 048
  26. ZOLEDRONIC [Concomitant]
     Active Substance: ZOLEDRONIC ACID
     Indication: Product used for unknown indication
     Dosage: 5MG/100ML INJ, 100ML
     Route: 065
  27. ASPIRIN [Concomitant]
     Active Substance: ASPIRIN
     Indication: Product used for unknown indication
     Dosage: LOW DOSE TABLETS
     Route: 048
  28. DEXAMETHASONE [Concomitant]
     Active Substance: DEXAMETHASONE
     Indication: Product used for unknown indication
     Route: 048
  29. REFRESH P.M. [Concomitant]
     Active Substance: MINERAL OIL\PETROLATUM
     Indication: Product used for unknown indication
     Route: 047
  30. ALLEGRA ALLERGY [Concomitant]
     Active Substance: FEXOFENADINE HYDROCHLORIDE
     Indication: Product used for unknown indication
     Route: 048
  31. VITAMINS [Concomitant]
     Active Substance: VITAMINS
     Indication: Product used for unknown indication
     Route: 048
  32. FLUTICASONE [Concomitant]
     Active Substance: FLUTICASONE
     Indication: Product used for unknown indication
     Route: 045

REACTIONS (7)
  - Neuropathy peripheral [Recovering/Resolving]
  - Taste disorder [Recovering/Resolving]
  - Swelling [Recovering/Resolving]
  - Diarrhoea [Unknown]
  - Headache [Recovering/Resolving]
  - Constipation [Recovering/Resolving]
  - Fatigue [Recovering/Resolving]

NARRATIVE: CASE EVENT DATE: 20210701
